FAERS Safety Report 13928953 (Version 2)
Quarter: 2017Q4

REPORT INFORMATION
  Report Type: Spontaneous
  Country: US (occurrence: US)
  Receive Date: 20170901
  Receipt Date: 20171018
  Transmission Date: 20180320
  Serious: Yes (Hospitalization)
  Sender: FDA-Public Use
  Company Number: US-ALVOGEN-2017-ALVOGEN-093278

PATIENT
  Sex: Male
  Weight: 98.88 kg

DRUGS (3)
  1. BUDESONIDE/FORMOTEROL FUMARATE [Suspect]
     Active Substance: BUDESONIDE\FORMOTEROL FUMARATE
     Indication: ASTHMA
     Dosage: 160/4.5MCG INHALER,2 PUFFS
     Route: 055
  2. ATENOLOL. [Suspect]
     Active Substance: ATENOLOL
     Indication: BLOOD PRESSURE ABNORMAL
     Route: 048
  3. BUDESONIDE/FORMOTEROL FUMARATE [Suspect]
     Active Substance: BUDESONIDE\FORMOTEROL FUMARATE
     Indication: CHRONIC OBSTRUCTIVE PULMONARY DISEASE
     Dosage: 160/4.5MCG INHALER,2 PUFFS
     Route: 055

REACTIONS (10)
  - Head injury [None]
  - Pelvic fracture [None]
  - Amnesia [None]
  - Fall [Unknown]
  - Spinal fracture [None]
  - Asthma [None]
  - Upper limb fracture [None]
  - Muscle spasms [None]
  - Memory impairment [None]
  - Muscle rupture [None]
